FAERS Safety Report 4324861-X (Version None)
Quarter: 2004Q1

REPORT INFORMATION
  Report Type: 
  Country: None (occurrence: None)
  Receive Date: 20040323
  Receipt Date: 20040309
  Transmission Date: 20041129
  Serious: Yes (Hospitalization)
  Sender: FDA-Public Use
  Company Number: 2004016527

PATIENT
  Age: 85 Year
  Sex: Male

DRUGS (3)
  1. DOXAZOSIN (DOXAZOSIN) [Suspect]
     Indication: BENIGN PROSTATIC HYPERPLASIA
     Dosage: 4 MG DAILY, ORAL
     Route: 048
     Dates: start: 20020801, end: 20031001
  2. PROPATYLNITRATE (PROPATYLNITRATE) [Concomitant]
  3. ACETYLSALICYLIC ACID SRT [Concomitant]

REACTIONS (1)
  - PROSTATIC OPERATION [None]
